FAERS Safety Report 7715904-1 (Version None)
Quarter: 2011Q3

REPORT INFORMATION
  Report Type: 
  Country: None (occurrence: None)
  Receive Date: 20110829
  Receipt Date: 20110825
  Transmission Date: 20111222
  Serious: Yes (Other)
  Sender: FDA-Public Use
  Company Number: DE-AMGEN-DEUSP2011041772

PATIENT
  Age: 47 Year
  Sex: Female
  Weight: 58 kg

DRUGS (3)
  1. EPIRUBICIN [Concomitant]
     Indication: BREAST CANCER
  2. TAXOTERE [Concomitant]
     Dosage: 100 MG, UNK
  3. NEULASTA [Suspect]
     Indication: CHEMOTHERAPY
     Dosage: 6 MG, AFTER CHEMO
     Dates: end: 20110811

REACTIONS (3)
  - LOCAL SWELLING [None]
  - BONE PAIN [None]
  - BACK PAIN [None]
